FAERS Safety Report 5408111-9 (Version None)
Quarter: 2007Q3

REPORT INFORMATION
  Report Type: 
  Country: None (occurrence: None)
  Receive Date: 20070806
  Receipt Date: 20070806
  Transmission Date: 20080115
  Serious: Yes (Hospitalization)
  Sender: FDA-Public Use
  Company Number: None

PATIENT
  Age: 81 Year
  Sex: Male

DRUGS (2)
  1. FELODIPINE [Suspect]
     Indication: HYPERTENSION
     Dosage: 2.5MG AM PO
     Route: 048
     Dates: start: 20070208, end: 20070522
  2. HYDROCHLOROTHIAZIDE [Suspect]
     Indication: OEDEMA
     Dosage: 25MG EVERY DAY PO
     Route: 048
     Dates: start: 20070208, end: 20070522

REACTIONS (3)
  - ASTHENIA [None]
  - PRESYNCOPE [None]
  - VISION BLURRED [None]
